FAERS Safety Report 4374589-5 (Version None)
Quarter: 2004Q2

REPORT INFORMATION
  Report Type: 
  Country: None (occurrence: None)
  Receive Date: 20040609
  Receipt Date: 20040601
  Transmission Date: 20050107
  Serious: Yes (Death, Hospitalization, Other)
  Sender: FDA-Public Use
  Company Number: US-MERCK-0406USA00094

PATIENT
  Age: 60 Year
  Sex: Male

DRUGS (7)
  1. CARDIZEM CD [Concomitant]
     Route: 065
  2. INSULIN [Concomitant]
     Route: 065
  3. GLUCOPHAGE [Concomitant]
     Route: 065
  4. ZOLOFT [Concomitant]
     Route: 065
  5. ZOCOR [Suspect]
     Route: 048
     Dates: start: 19960101
  6. ZOCOR [Suspect]
     Route: 048
     Dates: end: 20030101
  7. COUMADIN [Concomitant]
     Route: 065

REACTIONS (6)
  - CEREBROVASCULAR ACCIDENT [None]
  - COMA [None]
  - DIABETIC KETOACIDOSIS [None]
  - PNEUMONIA ASPIRATION [None]
  - RENAL FAILURE [None]
  - RHABDOMYOLYSIS [None]
